FAERS Safety Report 25355787 (Version 1)
Quarter: 2025Q2

REPORT INFORMATION
  Report Type: Spontaneous
  Country: US (occurrence: US)
  Receive Date: 20250525
  Receipt Date: 20250525
  Transmission Date: 20250716
  Serious: No
  Sender: TEVA
  Company Number: US-TEVA-VS-3332105

PATIENT
  Sex: Female

DRUGS (1)
  1. ADDERALL [Suspect]
     Active Substance: AMPHETAMINE ASPARTATE\AMPHETAMINE SULFATE\DEXTROAMPHETAMINE SACCHARATE\DEXTROAMPHETAMINE SULFATE
     Indication: Product used for unknown indication
     Route: 065

REACTIONS (8)
  - Drug effect less than expected [Unknown]
  - Adverse drug reaction [Unknown]
  - Tremor [Unknown]
  - Panic attack [Unknown]
  - Anxiety [Unknown]
  - Irritability [Unknown]
  - Palpitations [Unknown]
  - Thinking abnormal [Unknown]
